FAERS Safety Report 4340717-0 (Version None)
Quarter: 2004Q2

REPORT INFORMATION
  Report Type: 
  Country: None (occurrence: None)
  Receive Date: 20040419
  Receipt Date: 20040407
  Transmission Date: 20050107
  Serious: Yes (Hospitalization)
  Sender: FDA-Public Use
  Company Number: 200411203JP

PATIENT
  Age: 79 Year
  Sex: Male
  Weight: 51 kg

DRUGS (4)
  1. ARAVA [Suspect]
     Indication: RHEUMATOID ARTHRITIS
     Route: 048
     Dates: start: 20030923, end: 20040203
  2. PREDONINE [Suspect]
     Route: 048
     Dates: start: 20030722, end: 20040203
  3. MOBIC [Suspect]
     Route: 048
     Dates: start: 20030604, end: 20031021
  4. ROCALTROL [Concomitant]
     Route: 048
     Dates: start: 20030723, end: 20040203

REACTIONS (8)
  - ALANINE AMINOTRANSFERASE INCREASED [None]
  - ASPARTATE AMINOTRANSFERASE INCREASED [None]
  - BLOOD ALKALINE PHOSPHATASE INCREASED [None]
  - BLOOD LACTATE DEHYDROGENASE INCREASED [None]
  - GAMMA-GLUTAMYLTRANSFERASE INCREASED [None]
  - GASTRIC ULCER [None]
  - MELAENA [None]
  - NAUSEA [None]
